FAERS Safety Report 5690486-7 (Version None)
Quarter: 2008Q1

REPORT INFORMATION
  Report Type: 
  Country: None (occurrence: None)
  Receive Date: 20080331
  Receipt Date: 20080331
  Transmission Date: 20080703
  Serious: Yes (Hospitalization, Other)
  Sender: FDA-Public Use
  Company Number: None

PATIENT
  Age: 52 Year
  Sex: Female
  Weight: 47.6277 kg

DRUGS (1)
  1. OPCON-A [Suspect]
     Indication: EYE PRURITUS
     Dosage: ONE DROP  SINGLE DOSE OPTHALMIC
     Route: 047

REACTIONS (3)
  - INSTILLATION SITE REACTION [None]
  - MEDICATION ERROR [None]
  - MYDRIASIS [None]
